FAERS Safety Report 21797317 (Version 1)
Quarter: 2022Q4

REPORT INFORMATION
  Report Type: Spontaneous
  Country: JP (occurrence: JP)
  Receive Date: 20221230
  Receipt Date: 20221230
  Transmission Date: 20230112
  Serious: Yes (Hospitalization)
  Sender: FDA-Public Use
  Company Number: JP-KYOWAKIRIN-2022AKK020092

PATIENT
  Age: 41 Year
  Sex: Female

DRUGS (1)
  1. PEGFILGRASTIM [Suspect]
     Active Substance: PEGFILGRASTIM
     Indication: Peripheral blood stem cell apheresis
     Dosage: 7.2 MG
     Route: 058
     Dates: start: 20221202, end: 20221202

REACTIONS (2)
  - Device leakage [Recovered/Resolved with Sequelae]
  - Back pain [Recovered/Resolved]

NARRATIVE: CASE EVENT DATE: 20221203
